FAERS Safety Report 6986207-8 (Version None)
Quarter: 2010Q3

REPORT INFORMATION
  Report Type: 
  Country: None (occurrence: None)
  Receive Date: 20100915
  Receipt Date: 20090605
  Transmission Date: 20110219
  Serious: No
  Sender: FDA-Public Use
  Company Number: US-WYE-H09647109

PATIENT
  Age: 46 Year
  Sex: Female
  Weight: 69.01 kg

DRUGS (3)
  1. PRISTIQ [Suspect]
     Indication: DEPRESSION
     Route: 048
     Dates: start: 20090415, end: 20090603
  2. PRISTIQ [Suspect]
     Indication: ANXIETY
  3. CYMBALTA [Concomitant]

REACTIONS (3)
  - OEDEMA PERIPHERAL [None]
  - PARAESTHESIA [None]
  - TINNITUS [None]
